FAERS Safety Report 5718575-9 (Version None)
Quarter: 2008Q2

REPORT INFORMATION
  Report Type: 
  Country: None (occurrence: None)
  Receive Date: 20080425
  Receipt Date: 20080415
  Transmission Date: 20081010
  Serious: Yes (Disabling)
  Sender: FDA-Public Use
  Company Number: BE-GENENTECH-255142

PATIENT
  Sex: Male
  Weight: 75 kg

DRUGS (3)
  1. MABTHERA [Suspect]
     Indication: IDIOPATHIC THROMBOCYTOPENIC PURPURA
     Dosage: 375 MG/M2, 1/WEEK
     Route: 042
     Dates: start: 20071120, end: 20080108
  2. SINTROM [Concomitant]
     Indication: DRUG USE FOR UNKNOWN INDICATION
  3. BETA BLOCKER NOS [Concomitant]
     Indication: DRUG USE FOR UNKNOWN INDICATION

REACTIONS (5)
  - CATHETER RELATED INFECTION [None]
  - IIIRD NERVE DISORDER [None]
  - MILLER FISHER SYNDROME [None]
  - SEPTIC SHOCK [None]
  - VITH NERVE PARALYSIS [None]
